FAERS Safety Report 5109885-7 (Version None)
Quarter: 2006Q3

REPORT INFORMATION
  Report Type: 
  Country: None (occurrence: None)
  Receive Date: 20060919
  Receipt Date: 20060919
  Transmission Date: 20061208
  Serious: Yes (Hospitalization)
  Sender: FDA-Public Use
  Company Number: None

PATIENT
  Age: 83 Year
  Sex: Female

DRUGS (19)
  1. LEVAQUIN [Suspect]
     Indication: DIVERTICULITIS
     Dates: start: 20060608, end: 20060613
  2. METRONIDAZOLE [Suspect]
     Indication: DIVERTICULITIS
     Dates: start: 20060608, end: 20060613
  3. ACTOS [Concomitant]
  4. PREVACID [Concomitant]
  5. PROBENECID [Concomitant]
  6. COLCHICINE [Concomitant]
  7. ASPIRIN [Concomitant]
  8. ATENOLOL [Concomitant]
  9. MAGNESIUM [Concomitant]
  10. MELATONIN [Concomitant]
  11. ZETIA [Concomitant]
  12. LEXAPRO [Concomitant]
  13. SENNA [Concomitant]
  14. ALPRAZOLAM [Concomitant]
  15. IMIPRAMINE [Concomitant]
  16. DIAZEPAM [Concomitant]
  17. TYLENOL W/ CODEINE NO. 3 [Concomitant]
  18. CENTRUM [Concomitant]
  19. BENICOR [Concomitant]

REACTIONS (9)
  - ANXIETY [None]
  - CONFUSIONAL STATE [None]
  - CRYING [None]
  - DRUG WITHDRAWAL SYNDROME [None]
  - EMOTIONAL DISORDER [None]
  - FEAR [None]
  - MUSCLE TWITCHING [None]
  - PANIC ATTACK [None]
  - RESTLESSNESS [None]
